FAERS Safety Report 4947311-9 (Version None)
Quarter: 2006Q1

REPORT INFORMATION
  Report Type: 
  Country: None (occurrence: None)
  Receive Date: 20060314
  Receipt Date: 20060307
  Transmission Date: 20060701
  Serious: Yes (Hospitalization)
  Sender: FDA-Public Use
  Company Number: 2006BI001966

PATIENT
  Age: 56 Year
  Sex: Male
  Weight: 92.9874 kg

DRUGS (16)
  1. AVONEX [Suspect]
     Indication: MULTIPLE SCLEROSIS
     Dosage: 30 UG;QW;IM
     Route: 030
     Dates: start: 20020619, end: 20030101
  2. AVONEX [Suspect]
     Indication: MULTIPLE SCLEROSIS
     Dosage: 30 UG;QW;IM
     Route: 030
     Dates: start: 20000101
  3. DILTIAZEM HCL [Concomitant]
  4. VASOTEC RPD [Concomitant]
  5. HYDROCHLOROTHIAZIDE [Concomitant]
  6. PROBENECID [Concomitant]
  7. COLCHICINE [Concomitant]
  8. AMANTADINE HCL [Concomitant]
  9. DOXEPIN [Concomitant]
  10. AMITRIPTYLINE [Concomitant]
  11. POTASSIUM CHLORIDE [Concomitant]
  12. PROPOXYPHENE [Concomitant]
  13. ALPRAZOLAM [Concomitant]
  14. DIAZEPAM [Concomitant]
  15. ZYRTEC [Concomitant]
  16. CARISOPRODOL [Concomitant]

REACTIONS (1)
  - LIMB INJURY [None]
